FAERS Safety Report 10425379 (Version 1)
Quarter: 2014Q3

REPORT INFORMATION
  Report Type: Spontaneous
  Country: US (occurrence: None)
  Receive Date: 20140722
  Receipt Date: 20140722
  Transmission Date: 20150326
  Serious: No
  Sender: FDA-Public Use
  Company Number: AEGR000439

PATIENT
  Age: 59 Year
  Sex: Female
  Weight: 91.2 kg

DRUGS (7)
  1. CYMBALTA [Concomitant]
     Active Substance: DULOXETINE HYDROCHLORIDE
  2. PLAVIX [Concomitant]
     Active Substance: CLOPIDOGREL BISULFATE
  3. REMERON [Concomitant]
     Active Substance: MIRTAZAPINE
  4. JUXTAPID [Suspect]
     Active Substance: LOMITAPIDE MESYLATE
     Indication: TYPE IIA HYPERLIPIDAEMIA
     Route: 048
     Dates: start: 20131001
  5. LORAZEPAM (LORAZEPAM) [Concomitant]
     Active Substance: LORAZEPAM
  6. LISINOPRIL (LISINOPRIL) [Concomitant]
     Active Substance: LISINOPRIL
  7. NITROSTAT (GLYCERYL TRINITRATE) [Concomitant]

REACTIONS (4)
  - Abdominal pain upper [None]
  - Nausea [None]
  - Flatulence [None]
  - Hepatic enzyme increased [None]

NARRATIVE: CASE EVENT DATE: 201310
